FAERS Safety Report 19189610 (Version 1)
Quarter: 2021Q2

REPORT INFORMATION
  Report Type: Spontaneous
  Country: US (occurrence: US)
  Receive Date: 20210428
  Receipt Date: 20210428
  Transmission Date: 20210717
  Serious: Yes (Other)
  Sender: FDA-Public Use
  Company Number: None

PATIENT
  Age: 14 Year
  Sex: Male
  Weight: 45 kg

DRUGS (1)
  1. METHYLPHENIDATE 36 MG [Suspect]
     Active Substance: METHYLPHENIDATE
     Route: 048
     Dates: start: 20210121, end: 20210330

REACTIONS (1)
  - Mania [None]

NARRATIVE: CASE EVENT DATE: 20210330
